FAERS Safety Report 7653334-1 (Version None)
Quarter: 2011Q3

REPORT INFORMATION
  Report Type: 
  Country: None (occurrence: None)
  Receive Date: 20110803
  Receipt Date: 20110801
  Transmission Date: 20111222
  Serious: Yes (Other)
  Sender: FDA-Public Use
  Company Number: AT-PFIZER INC-2011174380

PATIENT
  Age: 90 Year
  Sex: Male

DRUGS (4)
  1. ATORVASTATIN CALCIUM [Suspect]
     Dosage: 10 MG, UNK
     Route: 048
  2. ENALAPRIL [Concomitant]
     Dosage: UNK
  3. PANTOPRAZOLE [Concomitant]
     Dosage: UNK MG, UNK
  4. ASPIRIN [Concomitant]
     Dosage: 75 MG, 1X/DAY

REACTIONS (2)
  - MACULAR DEGENERATION [None]
  - NEOPLASM PROSTATE [None]
